FAERS Safety Report 6682027-2 (Version None)
Quarter: 2010Q2

REPORT INFORMATION
  Report Type: 
  Country: None (occurrence: None)
  Receive Date: 20100414
  Receipt Date: 20100414
  Transmission Date: 20101027
  Serious: Yes (Hospitalization)
  Sender: FDA-Public Use
  Company Number: None

PATIENT
  Age: 37 Year
  Sex: Female
  Weight: 61.6 kg

DRUGS (1)
  1. VISIPAQUE [Suspect]
     Indication: COMPUTERISED TOMOGRAM
     Dosage: 100 ML ONE DOSE IV BOLUS
     Route: 040
     Dates: start: 20100302, end: 20100303

REACTIONS (4)
  - PRURITUS [None]
  - RASH [None]
  - SKIN DISORDER [None]
  - WOUND [None]
